FAERS Safety Report 7438687-1 (Version None)
Quarter: 2011Q2

REPORT INFORMATION
  Report Type: 
  Country: None (occurrence: None)
  Receive Date: 20110426
  Receipt Date: 20110411
  Transmission Date: 20111010
  Serious: Yes (Other)
  Sender: FDA-Public Use
  Company Number: JP-GENENTECH-317138

PATIENT

DRUGS (2)
  1. RITUXIMAB [Suspect]
     Indication: B-CELL LYMPHOMA REFRACTORY
     Route: 065
  2. INOTUZUMAB OZOGAMICIN [Suspect]
     Indication: B-CELL LYMPHOMA REFRACTORY
     Dosage: 1.8 MG/M2, Q28D
     Route: 065

REACTIONS (5)
  - THROMBOCYTOPENIA [None]
  - HYPERBILIRUBINAEMIA [None]
  - NEUTROPENIA [None]
  - LEUKOPENIA [None]
  - LYMPHOPENIA [None]
